FAERS Safety Report 7046776-9 (Version None)
Quarter: 2010Q4

REPORT INFORMATION
  Report Type: 
  Country: None (occurrence: None)
  Receive Date: 20101015
  Receipt Date: 20101006
  Transmission Date: 20110411
  Serious: Yes (Other)
  Sender: FDA-Public Use
  Company Number: US-JNJFOC-20101002257

PATIENT
  Age: 56 Year
  Sex: Female
  Weight: 78.93 kg

DRUGS (4)
  1. NUCYNTA [Suspect]
     Indication: ARTHRALGIA
     Route: 048
  2. NUCYNTA [Suspect]
     Route: 048
  3. NUCYNTA [Suspect]
     Indication: BACK PAIN
     Route: 048
  4. NUCYNTA [Suspect]
     Route: 048

REACTIONS (9)
  - DISTURBANCE IN ATTENTION [None]
  - DIZZINESS [None]
  - FATIGUE [None]
  - HEADACHE [None]
  - MEMORY IMPAIRMENT [None]
  - NAUSEA [None]
  - PYREXIA [None]
  - SOMNOLENCE [None]
  - TREMOR [None]
